FAERS Safety Report 8385264-4 (Version None)
Quarter: 2012Q2

REPORT INFORMATION
  Report Type: 
  Country: None (occurrence: None)
  Receive Date: 20120525
  Receipt Date: 20120514
  Transmission Date: 20120825
  Serious: No
  Sender: FDA-Public Use
  Company Number: US-BIOGENIDEC-2012BI017047

PATIENT
  Age: 63 Year
  Sex: Female

DRUGS (2)
  1. TYSABRI [Suspect]
     Indication: MULTIPLE SCLEROSIS
     Route: 042
     Dates: start: 20080815, end: 20090131
  2. TYSABRI [Suspect]
     Route: 042
     Dates: start: 20101014

REACTIONS (3)
  - ORAL DISCOMFORT [None]
  - CANDIDIASIS [None]
  - TOOTH EXTRACTION [None]
